FAERS Safety Report 13729771 (Version 3)
Quarter: 2017Q4

REPORT INFORMATION
  Report Type: Spontaneous
  Country: US (occurrence: US)
  Receive Date: 20170707
  Receipt Date: 20171005
  Transmission Date: 20180320
  Serious: Yes (Death)
  Sender: FDA-Public Use
  Company Number: US-JNJFOC-20170413495

PATIENT
  Age: 63 Year
  Sex: Female

DRUGS (6)
  1. XARELTO [Suspect]
     Active Substance: RIVAROXABAN
     Indication: THROMBOSIS
     Dosage: DOSE: 15 MG AND 20 MG
     Route: 048
     Dates: start: 20141024, end: 2016
  2. XARELTO [Suspect]
     Active Substance: RIVAROXABAN
     Indication: THROMBOSIS
     Dosage: DOSE: 15 MG AND 20 MG
     Route: 048
     Dates: start: 201603, end: 20160326
  3. XARELTO [Suspect]
     Active Substance: RIVAROXABAN
     Indication: DEEP VEIN THROMBOSIS
     Dosage: DOSE: 15 MG AND 20 MG
     Route: 048
     Dates: start: 201603, end: 20160326
  4. XARELTO [Suspect]
     Active Substance: RIVAROXABAN
     Indication: HAEMATOMA
     Dosage: DOSE: 15 MG AND 20 MG
     Route: 048
     Dates: start: 20141024, end: 2016
  5. XARELTO [Suspect]
     Active Substance: RIVAROXABAN
     Indication: DEEP VEIN THROMBOSIS
     Dosage: DOSE: 15 MG AND 20 MG
     Route: 048
     Dates: start: 20141024, end: 2016
  6. XARELTO [Suspect]
     Active Substance: RIVAROXABAN
     Indication: HAEMATOMA
     Dosage: DOSE: 15 MG AND 20 MG
     Route: 048
     Dates: start: 201603, end: 20160326

REACTIONS (1)
  - Pulmonary haemorrhage [Fatal]

NARRATIVE: CASE EVENT DATE: 20160326
